FAERS Safety Report 22001929 (Version 1)
Quarter: 2023Q1

REPORT INFORMATION
  Report Type: Other
  Country: GB (occurrence: GB)
  Receive Date: 20230216
  Receipt Date: 20230216
  Transmission Date: 20230417
  Serious: Yes (Other)
  Sender: FDA-Public Use
  Company Number: GB-CELLTRION INC.-2023GB002738

PATIENT

DRUGS (18)
  1. RITUXIMAB [Suspect]
     Active Substance: RITUXIMAB
     Indication: Unevaluable event
     Dosage: 800 MILLIGRAM, 1/WEEK
     Route: 041
  2. RITUXIMAB [Suspect]
     Active Substance: RITUXIMAB
     Dosage: 800 MILLIGRAM
     Route: 048
     Dates: start: 20221122
  3. ACYCLOVIR [Concomitant]
     Active Substance: ACYCLOVIR
     Dosage: 800 MG, QD
     Route: 048
     Dates: start: 20211129
  4. ALLOPURINOL [Concomitant]
     Active Substance: ALLOPURINOL
     Dosage: 300 MG, QD
     Route: 048
     Dates: start: 20140321
  5. DEXAMETHASONE [Concomitant]
     Active Substance: DEXAMETHASONE
     Dosage: 10 MG
     Route: 042
     Dates: start: 20221128
  6. DEXAMETHASONE [Concomitant]
     Active Substance: DEXAMETHASONE
     Dosage: UNK
  7. DIPHENHYDRAMINE [Concomitant]
     Active Substance: DIPHENHYDRAMINE
     Dosage: 50 MG
     Route: 042
     Dates: start: 20221128
  8. DIPHENHYDRAMINE [Concomitant]
     Active Substance: DIPHENHYDRAMINE
     Dosage: UNK
  9. IBRUTINIB [Concomitant]
     Active Substance: IBRUTINIB
     Dosage: 140 MG
     Route: 048
     Dates: start: 20180322
  10. KETOTIFEN [Concomitant]
     Active Substance: KETOTIFEN
     Dosage: 2, QD
     Route: 031
     Dates: start: 20220901
  11. MEDROL [Concomitant]
     Active Substance: METHYLPREDNISOLONE
  12. METHYLPREDNISOLONE [Concomitant]
     Active Substance: METHYLPREDNISOLONE
  13. MONTELUKAST [Concomitant]
     Active Substance: MONTELUKAST SODIUM
     Dosage: 10 MG, QD
     Route: 048
     Dates: start: 20220905
  14. SODIUM CHLORIDE [Concomitant]
     Active Substance: SODIUM CHLORIDE
     Dosage: 250 ML
     Route: 042
  15. ACETAMINOPHEN [Concomitant]
     Active Substance: ACETAMINOPHEN
  16. ACETAMINOPHEN [Concomitant]
     Active Substance: ACETAMINOPHEN
     Dosage: 1000 MG
     Route: 048
     Dates: start: 20221109, end: 20221109
  17. RIVAROXABAN [Concomitant]
     Active Substance: RIVAROXABAN
     Dosage: 30 MG, QD
     Route: 048
     Dates: start: 20221125
  18. SULFAMETHOXAZOLE [Concomitant]
     Active Substance: SULFAMETHOXAZOLE
     Dosage: 320 MG, QD
     Route: 048
     Dates: start: 20220607

REACTIONS (2)
  - Anaphylactic reaction [Unknown]
  - Off label use [Unknown]
